FAERS Safety Report 18954866 (Version 1)
Quarter: 2021Q1

REPORT INFORMATION
  Report Type: Spontaneous
  Country: TR (occurrence: TR)
  Receive Date: 20210301
  Receipt Date: 20210301
  Transmission Date: 20210420
  Serious: Yes (Death)
  Sender: FDA-Public Use
  Company Number: TR-BAYER-2021-083804

PATIENT
  Age: 8 Decade
  Sex: Female

DRUGS (2)
  1. ADEMPAS [Suspect]
     Active Substance: RIOCIGUAT
     Dosage: 2 UNK
  2. ADEMPAS [Suspect]
     Active Substance: RIOCIGUAT
     Dosage: 2.5 MG

REACTIONS (3)
  - Condition aggravated [Fatal]
  - Pulmonary endarterectomy [None]
  - Hypotension [None]

NARRATIVE: CASE EVENT DATE: 202101
